FAERS Safety Report 7513811-0 (Version None)
Quarter: 2011Q2

REPORT INFORMATION
  Report Type: 
  Country: None (occurrence: None)
  Receive Date: 20110531
  Receipt Date: 20110523
  Transmission Date: 20111010
  Serious: Yes (Other)
  Sender: FDA-Public Use
  Company Number: US-SANOFI-AVENTIS-2011SA032954

PATIENT
  Age: 80 Year
  Sex: Female

DRUGS (3)
  1. CHOLESTEROL- AND TRIGLYCERIDE REDUCERS [Concomitant]
  2. SYNTHROID [Concomitant]
  3. PLAVIX [Suspect]
     Indication: STENT PLACEMENT
     Route: 048
     Dates: start: 20100101

REACTIONS (3)
  - THROMBOSIS [None]
  - NERVE COMPRESSION [None]
  - PAIN IN EXTREMITY [None]
